FAERS Safety Report 8904272 (Version 2)
Quarter: 2012Q4

REPORT INFORMATION
  Report Type: 
  Country: US (occurrence: US)
  Receive Date: 20121112
  Receipt Date: 20121128
  Transmission Date: 20130627
  Serious: Yes (Other)
  Sender: FDA-Public Use
  Company Number: US-GLAXOSMITHKLINE-A1000458A

PATIENT
  Sex: Male

DRUGS (1)
  1. ADVAIR DISKUS [Suspect]
     Route: 055

REACTIONS (3)
  - Dyspnoea [Recovering/Resolving]
  - Steroid withdrawal syndrome [Unknown]
  - Product quality issue [Unknown]
